FAERS Safety Report 5227649-0 (Version None)
Quarter: 2007Q1

REPORT INFORMATION
  Report Type: 
  Country: None (occurrence: None)
  Receive Date: 20070202
  Receipt Date: 20070124
  Transmission Date: 20070707
  Serious: Yes (Life-Threatening, Hospitalization, Disabling)
  Sender: FDA-Public Use
  Company Number: JP-BOEHRINGER INGELHEIM PHARMACEUTICALS, INC.-2006-BP-07352NB

PATIENT
  Sex: Male
  Weight: 66.3 kg

DRUGS (6)
  1. BI-SIFROL TABLETS [Suspect]
     Indication: PARKINSON'S DISEASE
     Route: 048
     Dates: start: 20060410
  2. ARTANE [Suspect]
     Indication: PARKINSON'S DISEASE
     Route: 048
     Dates: start: 19910101
  3. SYMMETREL [Suspect]
     Indication: PARKINSON'S DISEASE
     Route: 048
     Dates: start: 19910101
  4. PAXIL [Suspect]
     Indication: PARKINSON'S DISEASE
     Route: 048
     Dates: start: 20040608
  5. MEILAX [Concomitant]
     Route: 048
     Dates: start: 19910101
  6. MUCOSTA [Concomitant]
     Route: 048
     Dates: start: 19910101

REACTIONS (3)
  - CEREBRAL INFARCTION [None]
  - PNEUMONIA [None]
  - RHABDOMYOLYSIS [None]
